FAERS Safety Report 6740522-1 (Version None)
Quarter: 2010Q2

REPORT INFORMATION
  Report Type: 
  Country: None (occurrence: None)
  Receive Date: 20100525
  Receipt Date: 20100517
  Transmission Date: 20101027
  Serious: Yes (Other)
  Sender: FDA-Public Use
  Company Number: US-ROCHE-693976

PATIENT
  Sex: Male

DRUGS (2)
  1. PEGASYS [Suspect]
     Indication: HEPATITIS C
     Dosage: FORM: PFS (PRE-FILLED SYRINGE)
     Route: 058
     Dates: start: 20100317
  2. COPEGUS [Suspect]
     Indication: HEPATITIS C
     Dosage: DIVIDED DOSES
     Route: 048
     Dates: start: 20100317

REACTIONS (10)
  - DIZZINESS [None]
  - FATIGUE [None]
  - HYPOAESTHESIA [None]
  - INSOMNIA [None]
  - MYALGIA [None]
  - NAUSEA [None]
  - NECK PAIN [None]
  - PARAESTHESIA [None]
  - RENAL IMPAIRMENT [None]
  - VOMITING [None]
